FAERS Safety Report 5802168-9 (Version None)
Quarter: 2008Q3

REPORT INFORMATION
  Report Type: 
  Country: None (occurrence: None)
  Receive Date: 20080707
  Receipt Date: 20080625
  Transmission Date: 20090109
  Serious: Yes (Other)
  Sender: FDA-Public Use
  Company Number: US-PFIZER INC-2008038951

PATIENT
  Sex: Male

DRUGS (4)
  1. LYRICA [Suspect]
     Indication: DIABETIC NEUROPATHY
     Route: 048
  2. INSULIN [Concomitant]
     Route: 058
  3. ADVIL [Concomitant]
  4. INSULIN INSULATARD NPH NORDISK [Concomitant]
     Route: 058

REACTIONS (3)
  - DIABETES MELLITUS INADEQUATE CONTROL [None]
  - GLYCOSYLATED HAEMOGLOBIN INCREASED [None]
  - VISION BLURRED [None]
